FAERS Safety Report 24187204 (Version 2)
Quarter: 2024Q3

REPORT INFORMATION
  Report Type: Spontaneous
  Country: TW (occurrence: TW)
  Receive Date: 20240808
  Receipt Date: 20240826
  Transmission Date: 20241016
  Serious: Yes (Death)
  Sender: ROCHE
  Company Number: TW-CHUGAI-2024026613

PATIENT
  Age: 53 Year
  Sex: Male
  Weight: 50 kg

DRUGS (1)
  1. HEMLIBRA [Suspect]
     Active Substance: EMICIZUMAB-KXWH
     Indication: Haemophilia A with anti factor VIII
     Dosage: UNK, ONCE/4WEEKS
     Route: 050
     Dates: start: 201911, end: 202407

REACTIONS (1)
  - Lip and/or oral cavity cancer [Fatal]

NARRATIVE: CASE EVENT DATE: 20230401
